FAERS Safety Report 14700847 (Version 6)
Quarter: 2019Q4

REPORT INFORMATION
  Report Type: Report from Study
  Country: US (occurrence: US)
  Receive Date: 20180330
  Receipt Date: 20191217
  Transmission Date: 20200122
  Serious: Yes (Death, Hospitalization)
  Sender: FDA-Public Use
  Company Number: US-EISAI MEDICAL RESEARCH-EC-2018-037562

PATIENT
  Age: 58 Year
  Sex: Female
  Weight: 38.3 kg

DRUGS (4)
  1. GABAPENTIN. [Concomitant]
     Active Substance: GABAPENTIN
  2. LENVATINIB [Suspect]
     Active Substance: LENVATINIB
     Indication: RENAL CELL CARCINOMA
     Route: 048
     Dates: start: 20180326, end: 20180329
  3. OXYCODONE [Concomitant]
     Active Substance: OXYCODONE
  4. EVEROLIMUS. [Suspect]
     Active Substance: EVEROLIMUS
     Indication: RENAL CELL CARCINOMA
     Route: 048
     Dates: start: 20180326, end: 20180329

REACTIONS (2)
  - Malignant neoplasm progression [Fatal]
  - Tumour pain [Recovered/Resolved]

NARRATIVE: CASE EVENT DATE: 20180329
